FAERS Safety Report 4922923-7 (Version None)
Quarter: 2006Q1

REPORT INFORMATION
  Report Type: 
  Country: None (occurrence: None)
  Receive Date: 20060224
  Receipt Date: 20060215
  Transmission Date: 20060701
  Serious: Yes (Hospitalization)
  Sender: FDA-Public Use
  Company Number: US-MERCK-0602USA04537

PATIENT
  Age: 71 Year
  Sex: Male
  Weight: 114 kg

DRUGS (3)
  1. VIOXX [Suspect]
     Indication: PAIN
     Route: 048
     Dates: start: 19990804, end: 20011101
  2. VIOXX [Suspect]
     Indication: INFLAMMATION
     Route: 048
     Dates: start: 19990804, end: 20011101
  3. TYLENOL (CAPLET) [Concomitant]
     Route: 065

REACTIONS (4)
  - CHOLECYSTECTOMY [None]
  - KNEE ARTHROPLASTY [None]
  - MYOCARDIAL INFARCTION [None]
  - VASCULAR BYPASS GRAFT [None]
